FAERS Safety Report 8488618-0 (Version None)
Quarter: 2012Q3

REPORT INFORMATION
  Report Type: 
  Country: None (occurrence: None)
  Receive Date: 20120705
  Receipt Date: 20120628
  Transmission Date: 20120928
  Serious: Yes (Hospitalization, Other)
  Sender: FDA-Public Use
  Company Number: PHEH2011US06040

PATIENT
  Sex: Male

DRUGS (22)
  1. HYDROCODONE BITARTRATE [Concomitant]
     Indication: BACK PAIN
     Dosage: 750/300MG, QID
     Route: 048
  2. FISH OIL [Concomitant]
     Dosage: UNK UKN, UNK
  3. VALTURNA [Suspect]
     Dosage: UNK UKN, UNK
  4. LISINOPRIL [Suspect]
     Dosage: UNK UKN, UNK
  5. CYMBALTA [Concomitant]
     Indication: ANXIETY
     Dosage: 60 MG, QD
     Route: 048
  6. SOMA [Concomitant]
     Dosage: UNK UKN, UNK
  7. CYMBALTA [Concomitant]
     Indication: DEPRESSION
  8. HYDROCODONE BITARTRATE [Concomitant]
     Indication: PAIN
  9. FENTANYL-100 [Concomitant]
     Indication: PAIN
     Dosage: 50 UG, Q72H
     Route: 062
  10. PRAVASTATIN [Concomitant]
     Indication: BLOOD CHOLESTEROL
     Dosage: 10 MG, QD
     Route: 048
  11. CARISOPRODOL [Concomitant]
     Indication: MUSCLE RELAXANT THERAPY
     Dosage: 350 MG, TID
     Route: 048
  12. CALCIUM [Concomitant]
  13. TEKTURNA [Suspect]
     Indication: BLOOD PRESSURE
     Dosage: 300 MG, QD
     Route: 048
  14. CLONAZEPAM [Concomitant]
     Indication: ANXIETY
     Dosage: 5 MG, QID
     Route: 048
  15. ANTIHYPERTENSIVES [Suspect]
     Indication: BLOOD PRESSURE
     Dosage: 1 DF, UNK
  16. DIOVAN [Suspect]
     Dosage: UNK UKN, UNK
  17. BENAZEPRIL [Suspect]
     Dosage: UNK UKN, UNK
  18. DIAZEPAM [Suspect]
     Dosage: UNK UKN, UNK
  19. SYNTHROID [Concomitant]
     Indication: THYROID DISORDER
     Dosage: UNK UKN, UNK
  20. ASPIRIN [Concomitant]
     Dosage: UNK UKN, UNK
  21. LEVOTHYROXINE SODIUM [Concomitant]
     Dosage: 0.175 MG, QD
     Route: 048
  22. ANALGESICS [Concomitant]
     Indication: BACK PAIN
     Dosage: UNK UKN, UNK

REACTIONS (7)
  - ROAD TRAFFIC ACCIDENT [None]
  - HAEMORRHAGE [None]
  - BLOOD PRESSURE FLUCTUATION [None]
  - SYNCOPE [None]
  - VERTIGO [None]
  - DRUG INEFFECTIVE [None]
  - HEAD INJURY [None]
